FAERS Safety Report 12975309 (Version 1)
Quarter: 2016Q4

REPORT INFORMATION
  Report Type: Spontaneous
  Country: US (occurrence: US)
  Receive Date: 20161124
  Receipt Date: 20161124
  Transmission Date: 20170207
  Serious: Yes (Other)
  Sender: FDA-Public Use
  Company Number: None

PATIENT
  Age: 60 Year
  Sex: Female
  Weight: 110.25 kg

DRUGS (7)
  1. SYNTHROID [Concomitant]
     Active Substance: LEVOTHYROXINE SODIUM
  2. SINGULAIR [Concomitant]
     Active Substance: MONTELUKAST SODIUM
  3. GLUCOVANCE AMLODIPINE [Concomitant]
  4. FUROSEMIDE. [Concomitant]
     Active Substance: FUROSEMIDE
  5. SIMVASTATIN. [Suspect]
     Active Substance: SIMVASTATIN
     Indication: HYPERLIPIDAEMIA
     Dates: start: 20140301, end: 20140324
  6. INSULIN: LANTUS [Concomitant]
  7. ATORVASTATIN [Suspect]
     Active Substance: ATORVASTATIN

REACTIONS (2)
  - Urticaria [None]
  - Product substitution issue [None]

NARRATIVE: CASE EVENT DATE: 20140301
